FAERS Safety Report 6941895-7 (Version None)
Quarter: 2010Q3

REPORT INFORMATION
  Report Type: 
  Country: None (occurrence: None)
  Receive Date: 20100826
  Receipt Date: 20100816
  Transmission Date: 20110219
  Serious: Yes (Other)
  Sender: FDA-Public Use
  Company Number: US-PFIZER INC-2010103400

PATIENT
  Sex: Female
  Weight: 72.562 kg

DRUGS (4)
  1. CHANTIX [Suspect]
     Indication: SMOKING CESSATION THERAPY
     Dosage: 0.5 MG, 1X/DAY
     Route: 048
     Dates: start: 20100813, end: 20100816
  2. ZOLOFT [Concomitant]
     Indication: DEPRESSION
     Dosage: 200 MG, 1X/DAY
     Route: 048
  3. ABILIFY [Concomitant]
     Indication: DEPRESSION
     Dosage: 0.5 MG, 3X/DAY
     Route: 048
  4. ATIVAN [Concomitant]
     Indication: DEPRESSION
     Dosage: 0.5 MG, 3X/DAY
     Route: 048

REACTIONS (4)
  - BURNING SENSATION [None]
  - DYSGEUSIA [None]
  - DYSPNOEA [None]
  - RASH [None]
